FAERS Safety Report 15687889 (Version 1)
Quarter: 2018Q4

REPORT INFORMATION
  Report Type: Spontaneous
  Country: US (occurrence: US)
  Receive Date: 20181205
  Receipt Date: 20181205
  Transmission Date: 20190205
  Serious: No
  Sender: FDA-Public Use
  Company Number: US-ROCHE-2158700

PATIENT
  Age: 19 Year
  Sex: Male

DRUGS (1)
  1. DIAZEPAM. [Suspect]
     Active Substance: DIAZEPAM
     Indication: AUTONOMIC NERVOUS SYSTEM IMBALANCE
     Route: 065

REACTIONS (1)
  - Treatment failure [Unknown]
